FAERS Safety Report 4366494-5 (Version None)
Quarter: 2004Q2

REPORT INFORMATION
  Report Type: 
  Country: None (occurrence: None)
  Receive Date: 20040527
  Receipt Date: 20040423
  Transmission Date: 20050107
  Serious: No
  Sender: FDA-Public Use
  Company Number: US-BRISTOL-MYERS SQUIBB COMPANY-12568887

PATIENT
  Age: 81 Year
  Sex: Female
  Weight: 66 kg

DRUGS (1)
  1. ERBITUX [Suspect]
     Indication: COLORECTAL CANCER
     Dosage: 670 MG MIXED IN 250 CC NORMAL SALINE
     Route: 042
     Dates: start: 20040416, end: 20040416

REACTIONS (2)
  - MEDICATION ERROR [None]
  - NO ADVERSE EFFECT [None]
